FAERS Safety Report 8092884-3 (Version None)
Quarter: 2012Q1

REPORT INFORMATION
  Report Type: 
  Country: None (occurrence: None)
  Receive Date: 20120128
  Receipt Date: 20110726
  Transmission Date: 20120608
  Serious: No
  Sender: FDA-Public Use
  Company Number: US-ABBOTT-11P-163-0841917-00

PATIENT
  Age: 42 Year
  Sex: Male

DRUGS (5)
  1. SIMVASTATIN [Concomitant]
     Indication: PRODUCT USED FOR UNKNOWN INDICATION
     Dosage: 20 MG - DAILY
  2. SYNTHROID [Concomitant]
     Indication: PRODUCT USED FOR UNKNOWN INDICATION
  3. TESTOSTERONE [Concomitant]
     Indication: PRODUCT USED FOR UNKNOWN INDICATION
     Dosage: GEL
  4. HUMIRA [Suspect]
     Indication: PSORIASIS
     Dates: start: 20110301
  5. PRINIVIL [Concomitant]
     Indication: PRODUCT USED FOR UNKNOWN INDICATION
     Dosage: 20 MG - DAILY

REACTIONS (7)
  - ERYTHEMA [None]
  - MUSCULOSKELETAL CHEST PAIN [None]
  - ARTHRALGIA [None]
  - FLUSHING [None]
  - FEELING HOT [None]
  - SKIN DISCOLOURATION [None]
  - MYALGIA [None]
